FAERS Safety Report 11238217 (Version 1)
Quarter: 2015Q3

REPORT INFORMATION
  Report Type: Spontaneous
  Country: FR (occurrence: FR)
  Receive Date: 20150703
  Receipt Date: 20150703
  Transmission Date: 20151125
  Serious: Yes (Hospitalization)
  Sender: FDA-Public Use
  Company Number: FR-ASTRAZENECA-2015SE63730

PATIENT
  Age: 17605 Day
  Sex: Female

DRUGS (4)
  1. CRESTOR [Suspect]
     Active Substance: ROSUVASTATIN CALCIUM
     Indication: TOXICITY TO VARIOUS AGENTS
     Route: 048
     Dates: start: 20150406
  2. CARBOLEVURE [Suspect]
     Active Substance: YEAST
     Indication: TOXICITY TO VARIOUS AGENTS
     Route: 048
     Dates: start: 20150406
  3. PARACETAMOL [Suspect]
     Active Substance: ACETAMINOPHEN
     Indication: TOXICITY TO VARIOUS AGENTS
     Route: 048
     Dates: start: 20150406
  4. KETOPROFENE [Suspect]
     Active Substance: KETOPROFEN
     Indication: TOXICITY TO VARIOUS AGENTS
     Route: 048
     Dates: start: 20150406

REACTIONS (3)
  - Somnolence [Unknown]
  - Toxicity to various agents [Recovered/Resolved]
  - Haemolysis [Unknown]

NARRATIVE: CASE EVENT DATE: 20150406
